FAERS Safety Report 7296550-3 (Version None)
Quarter: 2011Q1

REPORT INFORMATION
  Report Type: 
  Country: None (occurrence: None)
  Receive Date: 20110216
  Receipt Date: 20110204
  Transmission Date: 20110831
  Serious: Yes (Other)
  Sender: FDA-Public Use
  Company Number: PHHY2010US25140

PATIENT
  Sex: Female

DRUGS (5)
  1. RECLAST [Suspect]
     Dosage: UNK
     Route: 042
     Dates: start: 20090101
  2. PREVACID [Concomitant]
  3. RECLAST [Suspect]
     Dosage: UNK
     Route: 042
  4. VASOTEC [Concomitant]
  5. RECLAST [Suspect]
     Dosage: UNK
     Route: 042
     Dates: start: 20080101

REACTIONS (25)
  - OROPHARYNGEAL PAIN [None]
  - MUSCLE SPASMS [None]
  - INFLUENZA [None]
  - URINARY TRACT INFECTION [None]
  - TOOTH DISCOLOURATION [None]
  - ARTHROPATHY [None]
  - ORAL DISCOMFORT [None]
  - ARTHRALGIA [None]
  - HEADACHE [None]
  - BONE DISORDER [None]
  - RENAL PAIN [None]
  - MUSCULOSKELETAL PAIN [None]
  - INJURY [None]
  - BONE PAIN [None]
  - DYSSTASIA [None]
  - PYREXIA [None]
  - DISCOMFORT [None]
  - FAECES DISCOLOURED [None]
  - TOOTHACHE [None]
  - PAIN IN JAW [None]
  - MALAISE [None]
  - DEPRESSED MOOD [None]
  - BOWEL MOVEMENT IRREGULARITY [None]
  - MYALGIA [None]
  - PAIN [None]
